FAERS Safety Report 19825852 (Version 2)
Quarter: 2021Q4

REPORT INFORMATION
  Report Type: Spontaneous
  Country: JP (occurrence: JP)
  Receive Date: 20210914
  Receipt Date: 20211011
  Transmission Date: 20220303
  Serious: Yes (Other)
  Sender: FDA-Public Use
  Company Number: JP-TAKEDA-2021TJP086123

PATIENT
  Age: 78 Year
  Sex: Male

DRUGS (2)
  1. ALUNBRIG [Suspect]
     Active Substance: BRIGATINIB
     Indication: Lung neoplasm malignant
     Dosage: UNK UNK, QD
     Route: 048
     Dates: start: 20210623, end: 202107
  2. LORBRENA [Suspect]
     Active Substance: LORLATINIB
     Indication: Product used for unknown indication
     Dosage: UNK
     Route: 065

REACTIONS (2)
  - Pneumonia bacterial [Recovering/Resolving]
  - Dizziness [Recovering/Resolving]
